FAERS Safety Report 15986849 (Version 4)
Quarter: 2019Q3

REPORT INFORMATION
  Report Type: Spontaneous
  Country: US (occurrence: BR)
  Receive Date: 20190220
  Receipt Date: 20190711
  Transmission Date: 20191004
  Serious: Yes (Hospitalization, Other)
  Sender: FDA-Public Use
  Company Number: BR-CELGENEUS-USA-20190204314

PATIENT
  Age: 65 Year
  Sex: Male

DRUGS (1)
  1. VIDAZA [Suspect]
     Active Substance: AZACITIDINE
     Indication: MYELODYSPLASTIC SYNDROME
     Route: 058
     Dates: start: 20161003

REACTIONS (6)
  - Lung neoplasm malignant [Unknown]
  - Renal disorder [Not Recovered/Not Resolved]
  - Haemosiderosis [Not Recovered/Not Resolved]
  - Full blood count decreased [Unknown]
  - Bone marrow failure [Unknown]
  - Liver iron concentration increased [Unknown]

NARRATIVE: CASE EVENT DATE: 201804
